FAERS Safety Report 23565565 (Version 1)
Quarter: 2024Q1

REPORT INFORMATION
  Report Type: Spontaneous
  Country: CH (occurrence: CH)
  Receive Date: 20240226
  Receipt Date: 20240226
  Transmission Date: 20240409
  Serious: Yes (Hospitalization)
  Sender: FDA-Public Use
  Company Number: None

PATIENT
  Age: 61 Year
  Sex: Male

DRUGS (9)
  1. XANAX [Interacting]
     Active Substance: ALPRAZOLAM
     Indication: Product used for unknown indication
     Dosage: 4.5 MILLIGRAM (IN TOTAL)
     Route: 065
     Dates: start: 20240115, end: 20240115
  2. RYBELSUS [Suspect]
     Active Substance: SEMAGLUTIDE
     Indication: Product used for unknown indication
     Dosage: 49 MILLIGRAM (IN TOTAL)
     Route: 065
     Dates: start: 20240115, end: 20240115
  3. OLANZAPINE [Interacting]
     Active Substance: OLANZAPINE
     Indication: Product used for unknown indication
     Dosage: 7 MILLIGRAM (IN TOTAL)
     Route: 065
     Dates: start: 20240115, end: 20240115
  4. ZOLPIDEM [Interacting]
     Active Substance: ZOLPIDEM TARTRATE
     Indication: Product used for unknown indication
     Dosage: 70 MILLIGRAM (IN TOTAL)
     Route: 065
     Dates: start: 20240115, end: 20240115
  5. EZETIMIBE [Concomitant]
     Active Substance: EZETIMIBE
     Indication: Product used for unknown indication
     Dosage: 10 MILLIGRAM, QD
     Route: 065
  6. RYBELSUS [Concomitant]
     Active Substance: SEMAGLUTIDE
     Indication: Product used for unknown indication
     Dosage: 7 MILLIGRAM, QD
     Route: 065
  7. OLANPAX [Concomitant]
     Indication: Product used for unknown indication
     Dosage: 2.5 MILLIGRAM, QD (IN THE MORNING)
     Route: 065
  8. ZOLPIDEM [Concomitant]
     Active Substance: ZOLPIDEM TARTRATE
     Indication: Product used for unknown indication
     Dosage: 10 MILLIGRAM, QD
     Route: 065
  9. XANAX [Concomitant]
     Active Substance: ALPRAZOLAM
     Indication: Product used for unknown indication
     Dosage: 0.25 MILLIGRAM, BID
     Route: 065

REACTIONS (5)
  - Altered state of consciousness [Recovered/Resolved]
  - Miosis [Recovered/Resolved]
  - Drug interaction [Recovered/Resolved]
  - Intentional overdose [Recovered/Resolved]
  - Suicidal ideation [Unknown]

NARRATIVE: CASE EVENT DATE: 20240115
